FAERS Safety Report 25653136 (Version 1)
Quarter: 2025Q3

REPORT INFORMATION
  Report Type: Spontaneous
  Country: EU (occurrence: EU)
  Receive Date: 20250807
  Receipt Date: 20250807
  Transmission Date: 20251021
  Serious: Yes (Other)
  Sender: ALK-ABELLO
  Company Number: EU-ALKABELLO A/S-2025AA002607

PATIENT

DRUGS (5)
  1. ACARIZAX [Suspect]
     Active Substance: DERMATOPHAGOIDES FARINAE\DERMATOPHAGOIDES PTERONYSSINUS
     Indication: Immune tolerance induction
     Route: 048
     Dates: start: 20250630, end: 20250721
  2. FEXOFENADINE [Concomitant]
     Active Substance: FEXOFENADINE HYDROCHLORIDE
     Indication: Hypersensitivity
     Route: 048
     Dates: start: 2021
  3. FOSTER [Concomitant]
     Active Substance: BECLOMETHASONE\FORMOTEROL
     Indication: Asthma
     Dates: start: 2021
  4. SPIRIVA [Concomitant]
     Active Substance: TIOTROPIUM BROMIDE MONOHYDRATE
     Indication: Asthma
     Dates: start: 202504
  5. VENTOLIN [Concomitant]
     Active Substance: ALBUTEROL SULFATE
     Indication: Asthma

REACTIONS (14)
  - Fatigue [Recovered/Resolved]
  - Pharyngeal swelling [Recovered/Resolved with Sequelae]
  - Ear pain [Unknown]
  - Oral pain [Unknown]
  - Oropharyngeal pain [Unknown]
  - Malaise [Unknown]
  - Stomatitis [Unknown]
  - Mouth swelling [Unknown]
  - Oral mucosal blistering [Unknown]
  - Glossodynia [Unknown]
  - Mouth ulceration [Recovered/Resolved]
  - Swollen tongue [Unknown]
  - Lip swelling [Unknown]
  - Pain [Unknown]

NARRATIVE: CASE EVENT DATE: 20250630
